FAERS Safety Report 8436653 (Version 4)
Quarter: 2012Q4

REPORT INFORMATION
  Report Type: 
  Country: TR (occurrence: TR)
  Receive Date: 20120302
  Receipt Date: 20121120
  Transmission Date: 20130627
  Serious: Yes (Other)
  Sender: FDA-Public Use
  Company Number: TR-AMGEN-TURSP2012011351

PATIENT
  Age: 31 Year
  Sex: Male

DRUGS (3)
  1. ENBREL [Suspect]
     Indication: ANKYLOSING SPONDYLITIS
     Dosage: 50 mg, weekly, vial form
     Route: 058
     Dates: start: 20090819, end: 20110823
  2. ENBREL [Suspect]
     Dosage: 50 mg, weekly, Myclic
     Route: 058
     Dates: start: 20110823, end: 20120112
  3. ENBREL [Suspect]
     Dosage: 50 mg, weekly, Myclic
     Route: 058
     Dates: start: 201204, end: 201207

REACTIONS (9)
  - Palatal disorder [Not Recovered/Not Resolved]
  - Restlessness [Not Recovered/Not Resolved]
  - Fear [Not Recovered/Not Resolved]
  - Benign soft tissue neoplasm [Not Recovered/Not Resolved]
  - Blood count abnormal [Unknown]
  - Muscular weakness [Recovered/Resolved]
  - Diarrhoea [Recovered/Resolved]
  - Gingival pain [Not Recovered/Not Resolved]
  - Gingival abscess [Not Recovered/Not Resolved]
